FAERS Safety Report 19660239 (Version 1)
Quarter: 2021Q3

REPORT INFORMATION
  Report Type: Spontaneous
  Country: US (occurrence: US)
  Receive Date: 20210804
  Receipt Date: 20210804
  Transmission Date: 20211014
  Serious: No
  Sender: FDA-Public Use
  Company Number: None

PATIENT
  Age: 51 Year
  Sex: Female
  Weight: 68.04 kg

DRUGS (1)
  1. KEPPRA ? GENERIC [Suspect]
     Active Substance: LEVETIRACETAM

REACTIONS (1)
  - Seizure [None]

NARRATIVE: CASE EVENT DATE: 2007
